FAERS Safety Report 23767325 (Version 2)
Quarter: 2024Q2

REPORT INFORMATION
  Report Type: Spontaneous
  Country: TG (occurrence: TG)
  Receive Date: 20240422
  Receipt Date: 20240429
  Transmission Date: 20240716
  Serious: Yes (Life-Threatening, Hospitalization, Other)
  Sender: FDA-Public Use
  Company Number: TG-ORGANON-O2404TGO002468

PATIENT
  Age: 4 Year
  Sex: Male

DRUGS (2)
  1. EBASTINE [Suspect]
     Active Substance: EBASTINE
     Indication: Eye symptom
     Dosage: 2.5 MILLIGRAM
     Route: 065
     Dates: start: 20240415
  2. EBASTINE [Suspect]
     Active Substance: EBASTINE
     Dosage: 5 MILLIGRAM
     Route: 065

REACTIONS (1)
  - Hallucination [Unknown]

NARRATIVE: CASE EVENT DATE: 20240415
